FAERS Safety Report 4796828-9 (Version None)
Quarter: 2005Q3

REPORT INFORMATION
  Report Type: 
  Country: None (occurrence: None)
  Receive Date: 20050916
  Receipt Date: 20050107
  Transmission Date: 20060218
  Serious: Yes (Hospitalization)
  Sender: FDA-Public Use
  Company Number: US-JNJFOC-20050101928

PATIENT
  Age: 30 Year
  Sex: Female

DRUGS (8)
  1. TOPAMAX [Suspect]
     Indication: PAIN
     Dosage: 200MG AT HS
  2. ALLEGRA [Concomitant]
  3. NEXIUM [Concomitant]
  4. CYTOMEL [Concomitant]
  5. EFFEXOR [Concomitant]
  6. SINGULAIR [Concomitant]
  7. LIDODERM (LIDOCAINE) [Concomitant]
  8. FENTANYL [Concomitant]

REACTIONS (1)
  - ANAEMIA [None]
